FAERS Safety Report 26135897 (Version 1)
Quarter: 2025Q4

REPORT INFORMATION
  Report Type: Spontaneous
  Country: JP (occurrence: JP)
  Receive Date: 20251209
  Receipt Date: 20251209
  Transmission Date: 20260117
  Serious: Yes (Other)
  Sender: PFIZER
  Company Number: JP-PFIZER INC-PV202500141822

PATIENT
  Age: 75 Year
  Sex: Male

DRUGS (6)
  1. AMPICILLIN SODIUM\SULBACTAM SODIUM [Suspect]
     Active Substance: AMPICILLIN SODIUM\SULBACTAM SODIUM
     Indication: Drug eruption
     Dosage: UNK
  2. AMPICILLIN SODIUM\SULBACTAM SODIUM [Suspect]
     Active Substance: AMPICILLIN SODIUM\SULBACTAM SODIUM
     Indication: Pharyngeal abscess
  3. TEICOPLANIN [Concomitant]
     Active Substance: TEICOPLANIN
     Indication: Drug eruption
  4. TEICOPLANIN [Concomitant]
     Active Substance: TEICOPLANIN
     Indication: Pharyngeal abscess
  5. DEXAMETHASONE [Concomitant]
     Active Substance: DEXAMETHASONE
     Dosage: 3.3 MG, DAILY
  6. APIXABAN [Concomitant]
     Active Substance: APIXABAN
     Dosage: UNK
     Route: 048

REACTIONS (2)
  - Pneumonia [Unknown]
  - Drug ineffective [Unknown]
